FAERS Safety Report 7280789-7 (Version None)
Quarter: 2011Q1

REPORT INFORMATION
  Report Type: 
  Country: None (occurrence: None)
  Receive Date: 20110208
  Receipt Date: 20110203
  Transmission Date: 20110831
  Serious: Yes (Life-Threatening)
  Sender: FDA-Public Use
  Company Number: JP-BAYER-2011-001863

PATIENT
  Sex: Female
  Weight: 48 kg

DRUGS (9)
  1. ALDACTONE [Concomitant]
     Indication: MITRAL VALVE REPLACEMENT
     Dosage: DAILY DOSE 25 MG
     Route: 048
  2. LENDORMIN DAINIPPO [Concomitant]
     Indication: INSOMNIA
     Dosage: 0.25 MG, PRN
     Route: 048
  3. GLUCOBAY [Suspect]
     Indication: DIABETES MELLITUS
     Dosage: DAILY DOSE 150 MG
     Route: 048
     Dates: start: 20070228, end: 20101031
  4. WARFARIN SODIUM [Concomitant]
     Indication: MITRAL VALVE REPLACEMENT
     Route: 048
  5. ASPIRIN [Concomitant]
     Dosage: DAILY DOSE 100 MG
     Route: 048
  6. LASIX [Concomitant]
     Indication: MITRAL VALVE REPLACEMENT
     Dosage: DAILY DOSE 20 MG
     Route: 048
  7. THYRADIN S [Concomitant]
     Indication: HYPOTHYROIDISM
     Dosage: DAILY DOSE 1.25 ?G
     Route: 048
     Dates: start: 20101006
  8. ARTIST [Concomitant]
     Indication: MITRAL VALVE REPLACEMENT
     Dosage: DAILY DOSE 2.5 MG
     Route: 048
  9. OMEPRAL [Concomitant]
     Indication: MITRAL VALVE REPLACEMENT
     Dosage: DAILY DOSE 10 MG
     Route: 048

REACTIONS (3)
  - FLATULENCE [None]
  - GASTROINTESTINAL PERFORATION [None]
  - ABDOMINAL DISTENSION [None]
